FAERS Safety Report 5076647-9 (Version None)
Quarter: 2006Q3

REPORT INFORMATION
  Report Type: 
  Country: None (occurrence: None)
  Receive Date: 20060810
  Receipt Date: 20060801
  Transmission Date: 20061208
  Serious: Yes (Other)
  Sender: FDA-Public Use
  Company Number: JP-BRISTOL-MYERS SQUIBB COMPANY-13469291

PATIENT
  Age: 47 Year
  Sex: Female

DRUGS (30)
  1. ENDOXAN [Suspect]
     Indication: BREAST CANCER
     Route: 041
     Dates: start: 20050310, end: 20050623
  2. ADRIAMYCIN PFS [Suspect]
     Indication: BREAST CANCER
     Route: 041
     Dates: start: 20050310, end: 20050623
  3. RINDERON-A [Concomitant]
     Dates: start: 20050623, end: 20050623
  4. KYTRIL [Concomitant]
     Dates: start: 20050310, end: 20050623
  5. KYTRIL [Concomitant]
     Dates: start: 20050310, end: 20050314
  6. KYTRIL [Concomitant]
     Dates: start: 20050331, end: 20050404
  7. KYTRIL [Concomitant]
     Dates: start: 20050421, end: 20050425
  8. KYTRIL [Concomitant]
     Dates: start: 20050623, end: 20050627
  9. PURSENNID [Concomitant]
     Dates: start: 20050310, end: 20050316
  10. PURSENNID [Concomitant]
     Dates: start: 20050331, end: 20050504
  11. DECADRON [Concomitant]
     Dates: start: 20050310, end: 20050312
  12. CIPROFLOXACIN [Concomitant]
     Dates: start: 20050310, end: 20050316
  13. CIPROFLOXACIN [Concomitant]
     Dates: start: 20050530, end: 20050705
  14. PRIMPERAN TAB [Concomitant]
     Dates: start: 20050310, end: 20050310
  15. PRIMPERAN TAB [Concomitant]
     Dates: start: 20050331, end: 20050404
  16. PRIMPERAN TAB [Concomitant]
     Dates: start: 20050421, end: 20050430
  17. PRIMPERAN TAB [Concomitant]
     Dates: start: 20050623, end: 20050627
  18. MUCOSTA [Concomitant]
     Dates: start: 20050310, end: 20050605
  19. MUCOSTA [Concomitant]
     Dates: start: 20050623, end: 20050630
  20. GASTER D [Concomitant]
     Dates: start: 20050310, end: 20050504
  21. GASTER D [Concomitant]
     Dates: start: 20050509, end: 20050705
  22. SUCRALFATE [Concomitant]
     Dates: start: 20050313, end: 20050325
  23. SUCRALFATE [Concomitant]
     Dates: start: 20050331, end: 20050605
  24. SUCRALFATE [Concomitant]
     Dates: start: 20050623, end: 20050630
  25. BUSCOPAN [Concomitant]
     Dates: start: 20050313, end: 20050326
  26. DEXALTIN [Concomitant]
     Dates: start: 20050331, end: 20050331
  27. TARIVID [Concomitant]
     Dates: start: 20050509, end: 20050509
  28. TARIVID [Concomitant]
     Dates: start: 20050616, end: 20050616
  29. LEVOFLOXACIN [Concomitant]
     Dates: start: 20050623, end: 20050623
  30. FLUMETHOLON [Concomitant]
     Dates: start: 20050623, end: 20050623

REACTIONS (3)
  - CHALAZION [None]
  - NEUTROPHIL COUNT DECREASED [None]
  - WHITE BLOOD CELL COUNT DECREASED [None]
